FAERS Safety Report 18987464 (Version 1)
Quarter: 2021Q1

REPORT INFORMATION
  Report Type: Spontaneous
  Country: US (occurrence: US)
  Receive Date: 20210309
  Receipt Date: 20210309
  Transmission Date: 20210420
  Serious: Yes (Other)
  Sender: FDA-Public Use
  Company Number: US-TEVA-2021-US-1887219

PATIENT
  Age: 70 Year
  Sex: Female

DRUGS (1)
  1. LORAZEPAM TEVA [Suspect]
     Active Substance: LORAZEPAM
     Indication: MUSCLE SPASMS
     Route: 065

REACTIONS (11)
  - Tinnitus [Unknown]
  - Product substitution issue [Unknown]
  - Crying [Unknown]
  - Cardiovascular insufficiency [Not Recovered/Not Resolved]
  - Drug ineffective [Unknown]
  - Malaise [Unknown]
  - Nervousness [Unknown]
  - Anxiety [Unknown]
  - Dizziness [Unknown]
  - Arthritis [Not Recovered/Not Resolved]
  - Migraine with aura [Not Recovered/Not Resolved]
